FAERS Safety Report 21579747 (Version 1)
Quarter: 2022Q4

REPORT INFORMATION
  Report Type: Spontaneous
  Country: US (occurrence: None)
  Receive Date: 20221110
  Receipt Date: 20221110
  Transmission Date: 20230113
  Serious: Yes (unspecified)
  Sender: FDA-Public Use
  Company Number: None

PATIENT
  Age: 77 Year
  Sex: Female
  Weight: 58.97 kg

DRUGS (1)
  1. AMIODARONE [Suspect]
     Active Substance: AMIODARONE
     Indication: Heart rate irregular
     Dosage: FREQUENCY : TWICE A DAY;?OTHER ROUTE : INJECTION + MOUTH;?
     Route: 050
     Dates: start: 20220914, end: 20221007

REACTIONS (2)
  - Blister [None]
  - Wound treatment [None]

NARRATIVE: CASE EVENT DATE: 20220920
